FAERS Safety Report 4762617-4 (Version None)
Quarter: 2005Q3

REPORT INFORMATION
  Report Type: 
  Country: None (occurrence: None)
  Receive Date: 20050907
  Receipt Date: 20050719
  Transmission Date: 20060218
  Serious: Yes (Hospitalization)
  Sender: FDA-Public Use
  Company Number: JP-GLAXOSMITHKLINE-B0388426A

PATIENT
  Age: 95 Year
  Sex: Male
  Weight: 60 kg

DRUGS (6)
  1. VALTREX [Suspect]
     Indication: HERPES ZOSTER
     Dosage: 1000MG PER DAY
     Route: 048
     Dates: start: 20050715, end: 20050715
  2. NORITREN [Suspect]
     Indication: HERPES ZOSTER
     Dosage: 10MG PER DAY
     Route: 048
     Dates: start: 20050715, end: 20050715
  3. NORVASC [Concomitant]
     Route: 048
  4. CALTAN [Concomitant]
     Route: 048
  5. SEDIEL [Concomitant]
     Route: 048
  6. BIOTIN [Concomitant]
     Route: 065

REACTIONS (4)
  - CONFUSIONAL STATE [None]
  - DIFFICULTY IN WALKING [None]
  - SCRATCH [None]
  - SPEECH DISORDER [None]
